FAERS Safety Report 9387234 (Version 1)
Quarter: 2013Q3

REPORT INFORMATION
  Report Type: Spontaneous
  Country: US (occurrence: US)
  Receive Date: 20130708
  Receipt Date: 20130708
  Transmission Date: 20140515
  Serious: Yes (Other)
  Sender: FDA-Public Use
  Company Number: US-B.I. PHARMACEUTICALS,INC./RIDGEFIELD-2013-RO-01094RO

PATIENT
  Age: 24 Week
  Sex: Male
  Weight: 84 kg

DRUGS (10)
  1. RISPERIDONE [Suspect]
     Dosage: 4 MG
  2. SERTRALINE [Suspect]
     Dosage: 200 MG
  3. SERTRALINE [Suspect]
     Dosage: 250 MG
  4. PULMOVENT [Suspect]
     Dosage: 2700 MG
  5. DOCUSATE SODIUM [Suspect]
     Dosage: 300 MG
  6. QUETIAPINE XR [Suspect]
     Dosage: 500 MG
  7. LAMOTRIGINE [Suspect]
     Indication: DEPRESSION
     Dosage: 200 MG
  8. GABAPENTIN [Suspect]
     Dosage: 1800 MG
  9. ESZOPICLONE [Suspect]
     Dosage: 3 MG
  10. CALCIUM POLYCARBOPHIL [Suspect]
     Dosage: 2475 MG

REACTIONS (6)
  - Hypomania [Recovered/Resolved]
  - Restlessness [Unknown]
  - Musculoskeletal stiffness [Unknown]
  - Anxiety [Unknown]
  - Constipation [Unknown]
  - Weight increased [Recovered/Resolved]
